FAERS Safety Report 22331062 (Version 1)
Quarter: 2023Q2

REPORT INFORMATION
  Report Type: Spontaneous
  Country: US (occurrence: None)
  Receive Date: 20230515
  Receipt Date: 20230515
  Transmission Date: 20230722
  Serious: Yes (Disabling, Other)
  Sender: FDA-Public Use
  Company Number: None

PATIENT
  Age: 77 Year
  Sex: Male
  Weight: 90 kg

DRUGS (17)
  1. LINZESS [Suspect]
     Active Substance: LINACLOTIDE
     Indication: Irritable bowel syndrome
     Dosage: FREQUENCY : DAILY;?
     Route: 048
     Dates: start: 20220916, end: 20221016
  2. Amphetamine-Dextroamphetamine [Concomitant]
  3. SIMVASTATIN [Concomitant]
     Active Substance: SIMVASTATIN
  4. FENOFIBRATE [Concomitant]
     Active Substance: FENOFIBRATE
  5. OLANZAPINE [Concomitant]
     Active Substance: OLANZAPINE
  6. METFORMIN [Concomitant]
     Active Substance: METFORMIN HYDROCHLORIDE
  7. ZOLPIDEM TARTRATE [Concomitant]
     Active Substance: ZOLPIDEM TARTRATE
  8. TEMAZEPAM [Concomitant]
     Active Substance: TEMAZEPAM
  9. LATANOPROST [Concomitant]
     Active Substance: LATANOPROST
  10. brimonydine tartrate/timolol maleate 0.2% ophthalmic solution [Concomitant]
  11. DORZOLAMIDE HYDROCHLORIDE [Concomitant]
     Active Substance: DORZOLAMIDE HYDROCHLORIDE
  12. TAMSULOSIN [Concomitant]
     Active Substance: TAMSULOSIN
  13. TEBS vitamins for eyes [Concomitant]
  14. VITAMIN B COMPLEX [Concomitant]
     Active Substance: CYANOCOBALAMIN\DEXPANTHENOL\NIACINAMIDE\PYRIDOXINE HYDROCHLORIDE\RIBOFLAVIN 5^-PHOSPHATE SODIUM\THIA
  15. VITAMINS [Concomitant]
     Active Substance: VITAMINS
  16. VITAMIN D3 [Concomitant]
     Active Substance: CHOLECALCIFEROL
  17. LYCOPENE [Concomitant]
     Active Substance: LYCOPENE

REACTIONS (6)
  - Diarrhoea [None]
  - Sudden visual loss [None]
  - Blindness transient [None]
  - Vision blurred [None]
  - Orthostatic hypotension [None]
  - Visual acuity reduced [None]

NARRATIVE: CASE EVENT DATE: 20220916
